FAERS Safety Report 5809215-9 (Version None)
Quarter: 2008Q3

REPORT INFORMATION
  Report Type: 
  Country: None (occurrence: None)
  Receive Date: 20080714
  Receipt Date: 20080702
  Transmission Date: 20090109
  Serious: Yes (Other)
  Sender: FDA-Public Use
  Company Number: US-PFIZER INC-2008056368

PATIENT
  Sex: Female
  Weight: 81.6 kg

DRUGS (14)
  1. LYRICA [Suspect]
     Dosage: DAILY DOSE:300MG
  2. NEURONTIN [Concomitant]
     Dosage: DAILY DOSE:3600MG
  3. DRUG, UNSPECIFIED [Concomitant]
  4. PROZAC [Concomitant]
  5. MELOXICAM [Concomitant]
  6. TRANXENE [Concomitant]
  7. HYDROCODONE [Concomitant]
  8. BACLOFEN [Concomitant]
  9. SOMA [Concomitant]
  10. TRAMADOL HCL [Concomitant]
  11. KLONOPIN [Concomitant]
  12. ZANAFLEX [Concomitant]
  13. TOPAMAX [Concomitant]
  14. LUNESTA [Concomitant]

REACTIONS (2)
  - CEREBRAL DISORDER [None]
  - LOSS OF CONSCIOUSNESS [None]
